FAERS Safety Report 13937815 (Version 1)
Quarter: 2017Q3

REPORT INFORMATION
  Report Type: Spontaneous
  Country: ID (occurrence: ID)
  Receive Date: 20170905
  Receipt Date: 20170905
  Transmission Date: 20171127
  Serious: Yes (Hospitalization, Other)
  Sender: FDA-Public Use
  Company Number: ID-PFIZER INC-2017374434

PATIENT
  Sex: Female

DRUGS (1)
  1. XALKORI [Suspect]
     Active Substance: CRIZOTINIB
     Indication: NON-SMALL CELL LUNG CANCER
     Dosage: 250 MG, DAILY
     Dates: end: 20170828

REACTIONS (6)
  - Thrombocytopenia [Unknown]
  - Fall [Unknown]
  - Diplopia [Unknown]
  - Rash macular [Unknown]
  - Oedema peripheral [Unknown]
  - Asthenia [Unknown]
